FAERS Safety Report 5429583-X (Version None)
Quarter: 2007Q3

REPORT INFORMATION
  Report Type: 
  Country: None (occurrence: None)
  Receive Date: 20070829
  Receipt Date: 20070720
  Transmission Date: 20080115
  Serious: No
  Sender: FDA-Public Use
  Company Number: A0662186A

PATIENT
  Age: 54 Year
  Sex: Male
  Weight: 66.4 kg

DRUGS (8)
  1. EPZICOM [Suspect]
     Indication: HIV INFECTION
     Dosage: 1TAB PER DAY
     Route: 048
     Dates: start: 20070625, end: 20070702
  2. LEXIVA [Suspect]
     Indication: HIV INFECTION
     Dosage: 2TAB TWICE PER DAY
     Route: 048
     Dates: start: 20070626, end: 20070704
  3. TRUVADA [Concomitant]
  4. EPZICOM [Concomitant]
  5. LEXAPRO [Concomitant]
     Indication: SLEEP DISORDER
  6. ZETIA [Concomitant]
  7. ACTOS [Concomitant]
  8. NIASPAN [Concomitant]
     Indication: HIGH DENSITY LIPOPROTEIN
     Dosage: 1000MG UNKNOWN

REACTIONS (2)
  - PYREXIA [None]
  - RASH [None]
